FAERS Safety Report 4718802-0 (Version None)
Quarter: 2005Q3

REPORT INFORMATION
  Report Type: 
  Country: None (occurrence: None)
  Receive Date: 20050720
  Receipt Date: 20050225
  Transmission Date: 20060218
  Serious: Yes (Other)
  Sender: FDA-Public Use
  Company Number: CA-AMGEN-US118053

PATIENT
  Age: 50 Year
  Sex: Female

DRUGS (2)
  1. ENBREL [Suspect]
     Indication: PSORIATIC ARTHROPATHY
     Route: 058
     Dates: start: 20041020, end: 20050218
  2. SULFASALAZINE [Concomitant]
     Dates: start: 20040501

REACTIONS (5)
  - AUTOIMMUNE THROMBOCYTOPENIA [None]
  - EPISTAXIS [None]
  - HAEMATOCHEZIA [None]
  - HAEMORRHAGE [None]
  - POSTMENOPAUSAL HAEMORRHAGE [None]
